FAERS Safety Report 8515867-5 (Version None)
Quarter: 2012Q3

REPORT INFORMATION
  Report Type: 
  Country: None (occurrence: None)
  Receive Date: 20120717
  Receipt Date: 20120716
  Transmission Date: 20120928
  Serious: Yes (Death, Other)
  Sender: FDA-Public Use
  Company Number: GB-BAYER-2011-081353

PATIENT
  Age: 62 Year
  Sex: Male
  Weight: 59 kg

DRUGS (7)
  1. BIVALIRUDIN [Suspect]
     Dosage: 1 HOUR
     Route: 042
     Dates: start: 20110830, end: 20110830
  2. BECLOMETHASONE DIPROPIONATE [Concomitant]
     Route: 055
  3. ALBUTEROL SULATE [Concomitant]
     Route: 055
  4. PRASUGREL [Suspect]
     Dosage: 600 MG, UNK
     Route: 048
     Dates: start: 20110830, end: 20110830
  5. CLOPIDOGREL [Suspect]
     Indication: ACUTE CORONARY SYNDROME
     Dosage: 75 MG, QD
     Route: 048
     Dates: start: 20110826, end: 20110830
  6. ASPIRIN [Suspect]
     Indication: ACUTE CORONARY SYNDROME
     Dosage: 75 MG, QD
     Route: 048
     Dates: start: 20110826, end: 20110830
  7. ENOXAPARIN [Suspect]
     Indication: ACUTE CORONARY SYNDROME
     Dosage: 60 MG, BID
     Route: 058
     Dates: start: 20110826, end: 20110830

REACTIONS (6)
  - AGITATION [None]
  - LOSS OF CONSCIOUSNESS [None]
  - ACUTE MYOCARDIAL INFARCTION [None]
  - PUPIL FIXED [None]
  - COMA SCALE ABNORMAL [None]
  - HAEMORRHAGE INTRACRANIAL [None]
